FAERS Safety Report 16849371 (Version 1)
Quarter: 2019Q4

REPORT INFORMATION
  Report Type: Spontaneous
  Country: US (occurrence: US)
  Receive Date: 20190924
  Receipt Date: 20190924
  Transmission Date: 20200122
  Serious: Yes (Disabling, Other)
  Sender: FDA-Public Use
  Company Number: None

PATIENT
  Age: 62 Year
  Sex: Female
  Weight: 121.5 kg

DRUGS (13)
  1. NOVOLOG AND TRISEBA INSULIN [Concomitant]
  2. VERAPAMIL [Concomitant]
     Active Substance: VERAPAMIL HYDROCHLORIDE
  3. PROBIOTIC [Concomitant]
     Active Substance: PROBIOTICS NOS
  4. ONGLYZA [Suspect]
     Active Substance: SAXAGLIPTIN HYDROCHLORIDE
     Indication: TYPE 2 DIABETES MELLITUS
  5. DEPLIN [Concomitant]
     Active Substance: LEVOMEFOLATE CALCIUM
  6. CPAP [Concomitant]
     Active Substance: DEVICE
  7. COLACE [Concomitant]
     Active Substance: DOCUSATE SODIUM
  8. MELOXICAM. [Concomitant]
     Active Substance: MELOXICAM
  9. LISINOPRIL. [Concomitant]
     Active Substance: LISINOPRIL
  10. ATORVASTATIN [Concomitant]
     Active Substance: ATORVASTATIN
  11. OZEMPIC [Concomitant]
     Active Substance: SEMAGLUTIDE
  12. TURMERIC [Concomitant]
     Active Substance: HERBALS\TURMERIC
  13. VIT C WITH ROSE HIPS [Concomitant]

REACTIONS (8)
  - Fatigue [None]
  - Ventricular extrasystoles [None]
  - Cardiac disorder [None]
  - Atrial flutter [None]
  - Cardiac failure [None]
  - Fall [None]
  - Respiratory tract infection [None]
  - Joint injury [None]

NARRATIVE: CASE EVENT DATE: 20111202
